FAERS Safety Report 7501817-7 (Version None)
Quarter: 2011Q2

REPORT INFORMATION
  Report Type: 
  Country: None (occurrence: None)
  Receive Date: 20110525
  Receipt Date: 20110509
  Transmission Date: 20111010
  Serious: Yes (Hospitalization, Other)
  Sender: FDA-Public Use
  Company Number: US-BAYER-201017608NA

PATIENT
  Age: 21 Year
  Sex: Female
  Weight: 102 kg

DRUGS (2)
  1. YASMIN [Suspect]
     Indication: PRODUCT USED FOR UNKNOWN INDICATION
     Route: 048
  2. YAZ [Suspect]
     Indication: PRODUCT USED FOR UNKNOWN INDICATION

REACTIONS (9)
  - DYSPEPSIA [None]
  - ANXIETY [None]
  - DIARRHOEA [None]
  - CONSTIPATION [None]
  - DEPRESSION [None]
  - CHOLECYSTITIS CHRONIC [None]
  - CHOLECYSTECTOMY [None]
  - ABDOMINAL DISTENSION [None]
  - FLATULENCE [None]
